FAERS Safety Report 23692441 (Version 3)
Quarter: 2024Q2

REPORT INFORMATION
  Report Type: Spontaneous
  Country: US (occurrence: US)
  Receive Date: 20240401
  Receipt Date: 20240412
  Transmission Date: 20240716
  Serious: Yes (Other)
  Sender: FDA-Public Use
  Company Number: US-PFIZER INC-PV202400041886

PATIENT
  Age: 25 Year
  Sex: Female

DRUGS (3)
  1. TESTOSTERONE CYPIONATE [Suspect]
     Active Substance: TESTOSTERONE CYPIONATE
     Indication: Gender reassignment therapy
     Dosage: 60 MG, WEEKLY,FOR THE PAST 7 YEARS
  2. TESTOSTERONE CYPIONATE [Suspect]
     Active Substance: TESTOSTERONE CYPIONATE
     Dosage: 30 MG, WEEKLY, OVER THE NEXT 12 MONTHS
  3. HEPARIN [Concomitant]
     Active Substance: HEPARIN SODIUM
     Indication: Bradycardia
     Dosage: UNK
     Route: 042

REACTIONS (3)
  - Myopericarditis [Recovered/Resolved]
  - Bradycardia [Recovered/Resolved]
  - Atrioventricular block first degree [Recovered/Resolved]
